FAERS Safety Report 14261704 (Version 1)
Quarter: 2017Q4

REPORT INFORMATION
  Report Type: Other
  Country: FR (occurrence: FR)
  Receive Date: 20171208
  Receipt Date: 20171208
  Transmission Date: 20180321
  Serious: Yes (Hospitalization)
  Sender: FDA-Public Use
  Company Number: FR-TAKEDA-2017MPI011050

PATIENT
  Age: 75 Year
  Sex: Male

DRUGS (5)
  1. ZELITREX [Concomitant]
     Active Substance: VALACYCLOVIR HYDROCHLORIDE
     Dosage: UNK
     Route: 065
  2. BACTRIM [Concomitant]
     Active Substance: SULFAMETHOXAZOLE\TRIMETHOPRIM
     Dosage: UNK
     Route: 065
  3. CORTANCYL [Concomitant]
     Active Substance: PREDNISONE
     Dosage: 80 MG, QD
     Route: 065
  4. VELCADE [Suspect]
     Active Substance: BORTEZOMIB
     Indication: PLASMA CELL MYELOMA
     Dosage: 2.6 MG, UNK
     Route: 042
     Dates: start: 20170919, end: 20171010
  5. ALKERAN [Concomitant]
     Active Substance: MELPHALAN
     Dosage: UNK, QD
     Route: 065

REACTIONS (2)
  - Rash erythematous [Recovered/Resolved]
  - Pigmentation disorder [Recovering/Resolving]

NARRATIVE: CASE EVENT DATE: 20170926
